FAERS Safety Report 6370108-2 (Version None)
Quarter: 2009Q3

REPORT INFORMATION
  Report Type: 
  Country: None (occurrence: None)
  Receive Date: 20090923
  Receipt Date: 20070606
  Transmission Date: 20100115
  Serious: Yes (Other)
  Sender: FDA-Public Use
  Company Number: US-ASTRAZENECA-2006UW21285

PATIENT
  Age: 574 Month
  Sex: Female
  Weight: 90.7 kg

DRUGS (18)
  1. SEROQUEL [Suspect]
     Indication: SCHIZOPHRENIA
     Route: 048
     Dates: start: 20050101, end: 20050401
  2. SEROQUEL [Suspect]
     Indication: DEPRESSION
     Route: 048
     Dates: start: 20050101, end: 20050401
  3. SEROQUEL [Suspect]
     Dosage: 25 - 200 MG
     Route: 048
     Dates: start: 20050120
  4. SEROQUEL [Suspect]
     Dosage: 25 - 200 MG
     Route: 048
     Dates: start: 20050120
  5. UNSPECIFIED PSYCHIATRIC MEDICATION [Concomitant]
     Route: 065
  6. CIPROFLAXACIN [Concomitant]
     Route: 048
  7. CLOTRIM [Concomitant]
     Route: 048
  8. FLUCONAZOLE [Concomitant]
     Route: 048
  9. DEPAKOTE ER [Concomitant]
     Route: 048
  10. LIPITOR [Concomitant]
     Route: 048
  11. MIDRIN PM [Concomitant]
     Indication: HEADACHE
     Route: 048
  12. ASPIRIN [Concomitant]
     Dosage: 25 - 325 MG
     Route: 048
  13. ULTRACET [Concomitant]
     Route: 048
  14. LEXAPRO [Concomitant]
     Dosage: 10 - 30 MG
     Route: 048
  15. NAPROXEN [Concomitant]
     Route: 048
  16. GLUCOPHAGE [Concomitant]
     Route: 065
  17. ZESTRIL [Concomitant]
     Route: 048
     Dates: start: 20050121
  18. METFORMIN HCL [Concomitant]
     Route: 048

REACTIONS (10)
  - ANHEDONIA [None]
  - DEPRESSED MOOD [None]
  - DIABETES MELLITUS [None]
  - FATIGUE [None]
  - HALLUCINATION, AUDITORY [None]
  - HEMIPLEGIA [None]
  - HYPOAESTHESIA ORAL [None]
  - INSOMNIA [None]
  - PARANOIA [None]
  - TENDONITIS [None]
